FAERS Safety Report 22618949 (Version 4)
Quarter: 2024Q4

REPORT INFORMATION
  Report Type: Report from Study
  Country: US (occurrence: US)
  Receive Date: 20230620
  Receipt Date: 20241002
  Transmission Date: 20250115
  Serious: Yes (Other)
  Sender: ABBVIE
  Company Number: US-ABBVIE-5292314

PATIENT
  Sex: Male
  Weight: 89 kg

DRUGS (10)
  1. IMBRUVICA [Suspect]
     Active Substance: IBRUTINIB
     Indication: Chronic lymphocytic leukaemia
     Route: 048
     Dates: start: 20201010, end: 202403
  2. IMBRUVICA [Suspect]
     Active Substance: IBRUTINIB
     Indication: Chronic lymphocytic leukaemia
     Dosage: 420 MILLIGRAM
     Route: 048
     Dates: start: 202403
  3. TAMSULOSIN [Concomitant]
     Active Substance: TAMSULOSIN
     Indication: Benign prostatic hyperplasia
  4. ATORVASTATIN [Concomitant]
     Active Substance: ATORVASTATIN
     Indication: Blood cholesterol increased
     Dosage: 10 MILLIGRAM
  5. VITAMIN D3 [Concomitant]
     Active Substance: CHOLECALCIFEROL
     Indication: Vitamin D deficiency
     Dosage: 5000 IU (INTERNATIONAL UNIT)
  6. ASPIRIN [Concomitant]
     Active Substance: ASPIRIN
     Indication: Cardiac disorder
  7. LISINOPRIL [Concomitant]
     Active Substance: LISINOPRIL
     Indication: Product used for unknown indication
  8. AMLODIPINE [Concomitant]
     Active Substance: AMLODIPINE BESYLATE
     Indication: Hypertension
     Dosage: 10 MILLIGRAM
  9. ESCITALOPRAM [Concomitant]
     Active Substance: ESCITALOPRAM OXALATE
     Indication: Anxiety
     Dosage: 10 MILLIGRAM
  10. OMEPRAZOLE [Concomitant]
     Active Substance: OMEPRAZOLE
     Indication: Dyspepsia

REACTIONS (16)
  - Myocardial ischaemia [Unknown]
  - Dental caries [Recovered/Resolved]
  - Full blood count decreased [Unknown]
  - Platelet count decreased [Not Recovered/Not Resolved]
  - Impaired healing [Not Recovered/Not Resolved]
  - White blood cell count decreased [Not Recovered/Not Resolved]
  - Haemorrhage [Unknown]
  - Contusion [Not Recovered/Not Resolved]
  - Supraventricular extrasystoles [Unknown]
  - Ventricular extrasystoles [Unknown]
  - Benign prostatic hyperplasia [Recovering/Resolving]
  - Coronary artery occlusion [Not Recovered/Not Resolved]
  - Lymphocyte count decreased [Not Recovered/Not Resolved]
  - Blood immunoglobulin M increased [Recovered/Resolved]
  - Monoclonal immunoglobulin present [Unknown]
  - Benign prostatic hyperplasia [Unknown]

NARRATIVE: CASE EVENT DATE: 20200101
